FAERS Safety Report 9052864 (Version 1)
Quarter: 2013Q1

REPORT INFORMATION
  Report Type: Spontaneous
  Country: CM (occurrence: CM)
  Receive Date: 20130207
  Receipt Date: 20130207
  Transmission Date: 20140127
  Serious: Yes (Other)
  Sender: FDA-Public Use
  Company Number: CM-MYLANLABS-2013S1002126

PATIENT
  Age: 30 Year
  Sex: Male

DRUGS (4)
  1. EFAVIRENZ [Suspect]
     Indication: HIV INFECTION
     Route: 065
     Dates: start: 201103
  2. LAMIVUDINE [Suspect]
     Indication: HIV INFECTION
     Route: 065
     Dates: start: 201103
  3. ZIDOVUDINE [Suspect]
     Indication: HIV INFECTION
     Route: 065
     Dates: start: 201103
  4. COTRIMOXAZOLE [Concomitant]
     Indication: PROPHYLAXIS
     Route: 065

REACTIONS (2)
  - Immune reconstitution inflammatory syndrome [Recovering/Resolving]
  - Vitiligo [Recovering/Resolving]
